FAERS Safety Report 15568695 (Version 2)
Quarter: 2018Q4

REPORT INFORMATION
  Report Type: Report from Study
  Country: None (occurrence: US)
  Receive Date: 20181031
  Receipt Date: 20181104
  Transmission Date: 20190205
  Serious: Yes (Death)
  Sender: FDA-Public Use
  Company Number: US-ABBVIE-18K-163-2538546-00

PATIENT
  Age: 80 Year
  Sex: Male

DRUGS (2)
  1. VENCLEXTA [Suspect]
     Active Substance: VENETOCLAX
     Indication: MANTLE CELL LYMPHOMA
     Dosage: WK1:20MG ,WK2:50MG ,WK3:100MG, WK4:200MG
     Route: 048
     Dates: start: 20180920, end: 20181007
  2. VENCLEXTA [Suspect]
     Active Substance: VENETOCLAX
     Indication: LYMPHADENOPATHY

REACTIONS (2)
  - Intentional product use issue [Unknown]
  - Leukaemia [Fatal]

NARRATIVE: CASE EVENT DATE: 20181008
